FAERS Safety Report 21881630 (Version 1)
Quarter: 2023Q1

REPORT INFORMATION
  Report Type: Spontaneous
  Country: US (occurrence: US)
  Receive Date: 20230119
  Receipt Date: 20230119
  Transmission Date: 20230417
  Serious: No
  Sender: FDA-Public Use
  Company Number: US-VIIV HEALTHCARE LIMITED-US2023004479

PATIENT
  Sex: Male

DRUGS (1)
  1. TIVICAY PD [Suspect]
     Active Substance: DOLUTEGRAVIR SODIUM
     Indication: Product used for unknown indication
     Dosage: UNK

REACTIONS (2)
  - Illness [Unknown]
  - Product use issue [Unknown]
